FAERS Safety Report 9560195 (Version 4)
Quarter: 2014Q2

REPORT INFORMATION
  Report Type: Spontaneous
  Country: US (occurrence: US)
  Receive Date: 20130927
  Receipt Date: 20140625
  Transmission Date: 20141212
  Serious: No
  Sender: FDA-Public Use
  Company Number: US-BIOGENIDEC-2013BI049145

PATIENT
  Age: 48 Year
  Sex: Female

DRUGS (4)
  1. TECFIDERA [Suspect]
     Indication: MULTIPLE SCLEROSIS
     Route: 048
     Dates: start: 20130513, end: 20130523
  2. TECFIDERA [Suspect]
     Indication: MULTIPLE SCLEROSIS
     Dates: start: 20130530
  3. TECFIDERA [Suspect]
     Indication: MULTIPLE SCLEROSIS
     Route: 048
     Dates: start: 20130603, end: 20140514
  4. AVONEX [Concomitant]
     Route: 030
     Dates: start: 20000202, end: 20130812

REACTIONS (4)
  - Hyperkeratosis [Recovered/Resolved]
  - Rash erythematous [Not Recovered/Not Resolved]
  - Flushing [Recovered/Resolved]
  - Cervical dysplasia [Recovered/Resolved]
